FAERS Safety Report 23897813 (Version 2)
Quarter: 2024Q2

REPORT INFORMATION
  Report Type: Spontaneous
  Country: US (occurrence: US)
  Receive Date: 20240524
  Receipt Date: 20240617
  Transmission Date: 20240715
  Serious: Yes (Other)
  Sender: FDA-Public Use
  Company Number: US-BRISTOL-MYERS SQUIBB COMPANY-2024-080918

PATIENT
  Age: 74 Year
  Sex: Female

DRUGS (2)
  1. POMALYST [Suspect]
     Active Substance: POMALIDOMIDE
     Indication: Plasma cell myeloma
     Dosage: FREQUENCY: TAKE 1 WHOLE CAPSULE BY MOUTH W/ WATER, W/ OR W/O FOOD AT ABOUT THE SAME TIME DAILY ON DA
     Route: 048
  2. POMALYST [Suspect]
     Active Substance: POMALIDOMIDE
     Dosage: FREQUENCY: 1 WHOLE CAPSULE BY MOUTH WITH WATER, WITH OR WITHOUT FOOD AT ABOUT THE SAME TIME DAILY ON
     Route: 048

REACTIONS (6)
  - Product dose omission issue [Unknown]
  - Thrombosis [Recovered/Resolved]
  - Loss of consciousness [Recovered/Resolved]
  - Pneumonia [Recovered/Resolved]
  - Head injury [Unknown]
  - White blood cell count decreased [Not Recovered/Not Resolved]
